FAERS Safety Report 10329113 (Version 2)
Quarter: 2014Q3

REPORT INFORMATION
  Report Type: Spontaneous
  Country: GB (occurrence: None)
  Receive Date: 20140717
  Receipt Date: 20140723
  Transmission Date: 20150326
  Serious: Yes (Other)
  Sender: FDA-Public Use
  Company Number: AUR-APL-2014-07481

PATIENT
  Age: 18 Year
  Sex: Male

DRUGS (6)
  1. MIRTAZAPINE. [Suspect]
     Active Substance: MIRTAZAPINE
     Indication: EATING DISORDER
     Dosage: ONCE A DAY,
  2. MIRTAZAPINE. [Suspect]
     Active Substance: MIRTAZAPINE
     Indication: SLEEP DISORDER
     Dosage: ONCE A DAY,
  3. FLUCLOXACILLIN (FLUCLOXACILLIN) [Concomitant]
     Active Substance: FLUCLOXACILLIN
  4. PROPRANOLOL [Concomitant]
     Active Substance: PROPRANOLOL\PROPRANOLOL HYDROCHLORIDE
  5. MIRTAZAPINE. [Suspect]
     Active Substance: MIRTAZAPINE
     Indication: DEPRESSION
     Dosage: ONCE A DAY,
  6. MIRTAZAPINE. [Suspect]
     Active Substance: MIRTAZAPINE
     Indication: DECREASED INTEREST
     Dosage: ONCE A DAY,

REACTIONS (10)
  - Hallucination, visual [None]
  - Obsessive-compulsive disorder [None]
  - Mood swings [None]
  - Weight increased [None]
  - Convulsion [None]
  - Abnormal dreams [None]
  - Insomnia [None]
  - Aggression [None]
  - Hypersomnia [None]
  - Increased appetite [None]
